FAERS Safety Report 12752682 (Version 1)
Quarter: 2016Q3

REPORT INFORMATION
  Report Type: Spontaneous
  Country: US (occurrence: US)
  Receive Date: 20160916
  Receipt Date: 20160916
  Transmission Date: 20161109
  Serious: Yes (Congenital Anomaly)
  Sender: FDA-Public Use
  Company Number: US-ABBVIE-16K-163-1724284-00

PATIENT
  Sex: Female
  Weight: 4 kg

DRUGS (1)
  1. HUMIRA [Suspect]
     Active Substance: ADALIMUMAB
     Indication: MATERNAL EXPOSURE TIMING UNSPECIFIED
     Route: 064

REACTIONS (3)
  - Microtia [Unknown]
  - Foetal exposure during pregnancy [Unknown]
  - External auditory canal atresia [Unknown]

NARRATIVE: CASE EVENT DATE: 2016
